FAERS Safety Report 23159954 (Version 1)
Quarter: 2023Q4

REPORT INFORMATION
  Report Type: Spontaneous
  Country: US (occurrence: US)
  Receive Date: 20231108
  Receipt Date: 20231108
  Transmission Date: 20240110
  Serious: No
  Sender: FDA-Public Use
  Company Number: US-TEVA-2023-US-2940893

PATIENT
  Age: 33 Year
  Sex: Male
  Weight: 7.56 kg

DRUGS (2)
  1. FEXOFENADINE [Suspect]
     Active Substance: FEXOFENADINE HYDROCHLORIDE
     Indication: Upper-airway cough syndrome
     Dosage: 180 MILLIGRAM DAILY; 180 MG 571
     Route: 048
     Dates: start: 2000, end: 2017
  2. FEXOFENADINE [Suspect]
     Active Substance: FEXOFENADINE HYDROCHLORIDE
     Dosage: 180 MILLIGRAM DAILY; 180 MG 571
     Route: 048
     Dates: start: 202210, end: 20231019

REACTIONS (4)
  - Dry eye [Not Recovered/Not Resolved]
  - Drug effective for unapproved indication [Unknown]
  - Wrong technique in product usage process [Unknown]
  - Expired product administered [Unknown]

NARRATIVE: CASE EVENT DATE: 20000101
